FAERS Safety Report 23031655 (Version 1)
Quarter: 2023Q4

REPORT INFORMATION
  Report Type: Spontaneous
  Country: GB (occurrence: GB)
  Receive Date: 20231005
  Receipt Date: 20231005
  Transmission Date: 20240110
  Serious: Yes (Other)
  Sender: FDA-Public Use
  Company Number: None

PATIENT
  Age: 72 Year

DRUGS (10)
  1. ATORVASTATIN [Suspect]
     Active Substance: ATORVASTATIN
     Indication: Blood cholesterol increased
     Dosage: NIGHT
  2. ADIZEM [Concomitant]
     Active Substance: DILTIAZEM HYDROCHLORIDE
  3. CETRABEN [Concomitant]
  4. CLOBETASOL [Concomitant]
     Active Substance: CLOBETASOL
  5. CLOPIDOGREL [Concomitant]
     Active Substance: CLOPIDOGREL BISULFATE
  6. ESTRADIOL [Concomitant]
     Active Substance: ESTRADIOL
  7. LEVOTHYROXINE [Concomitant]
     Active Substance: LEVOTHYROXINE
  8. RIVAROXABAN [Concomitant]
     Active Substance: RIVAROXABAN
  9. TESTOSTERONE [Concomitant]
     Active Substance: TESTOSTERONE
  10. SIMVASTATIN [Concomitant]
     Active Substance: SIMVASTATIN
     Dosage: NIGHT

REACTIONS (5)
  - Anger [Not Recovered/Not Resolved]
  - Nightmare [Not Recovered/Not Resolved]
  - Agitation [Unknown]
  - Stress [Unknown]
  - Mood altered [Unknown]

NARRATIVE: CASE EVENT DATE: 20181128
